FAERS Safety Report 13551651 (Version 1)
Quarter: 2017Q2

REPORT INFORMATION
  Report Type: Other
  Country: IT (occurrence: IT)
  Receive Date: 20170516
  Receipt Date: 20170516
  Transmission Date: 20170830
  Serious: Yes (Life-Threatening)
  Sender: FDA-Public Use
  Company Number: IT-SYMPLMED PHARMACEUTICALS-2017SYMPLMED000450

PATIENT

DRUGS (2)
  1. AUGMENTIN [Suspect]
     Active Substance: AMOXICILLIN\CLAVULANATE POTASSIUM
     Indication: TOOTH ABSCESS
     Dosage: 1 (875MG/125MG) DF, SINGLE
     Route: 048
     Dates: start: 20170508, end: 20170508
  2. REAPTAN [Suspect]
     Active Substance: AMLODIPINE BESYLATE
     Indication: HYPERTENSION
     Dosage: 1 (5MG/5MG) TABLET, QD
     Route: 048
     Dates: start: 201605

REACTIONS (5)
  - Drug interaction [Recovered/Resolved]
  - Pruritus [Recovered/Resolved]
  - Loss of consciousness [Recovered/Resolved]
  - Tooth abscess [Not Recovered/Not Resolved]
  - Hypotension [Recovered/Resolved]

NARRATIVE: CASE EVENT DATE: 20170508
